FAERS Safety Report 4680408-X (Version None)
Quarter: 2005Q2

REPORT INFORMATION
  Report Type: 
  Country: None (occurrence: None)
  Receive Date: 20050601
  Receipt Date: 20050511
  Transmission Date: 20051028
  Serious: No
  Sender: FDA-Public Use
  Company Number: JP_050506572

PATIENT
  Age: 62 Year
  Sex: Male

DRUGS (2)
  1. ZYPREXA [Suspect]
     Indication: SCHIZOPHRENIA
     Dosage: 20 MG DAY
     Dates: start: 20050428, end: 20050511
  2. VALPROATE SODIUM [Concomitant]

REACTIONS (1)
  - RED BLOOD CELL COUNT DECREASED [None]
